FAERS Safety Report 8797119 (Version 1)
Quarter: 2012Q4

REPORT INFORMATION
  Report Type: 
  Country: JP (occurrence: JP)
  Receive Date: 20120920
  Receipt Date: 20120920
  Transmission Date: 20130627
  Serious: Yes (Hospitalization, Other)
  Sender: FDA-Public Use
  Company Number: JP-ACCORD-014661

PATIENT
  Age: 67 Year
  Sex: Female

DRUGS (2)
  1. DOCETAXEL [Suspect]
     Indication: EXTRAMAMMARY PAGET^S DISEASE
     Dosage: Docetaxel: 75 mg/m^2 (first cycle), 37.5 mg/m^2 (second and third cycle)
  2. CEFCAPENE [Concomitant]
     Indication: INFECTION PROPHYLAXIS
     Route: 048

REACTIONS (4)
  - Clostridium difficile colitis [Recovered/Resolved]
  - Febrile neutropenia [Recovered/Resolved]
  - Neutropenia [Unknown]
  - Off label use [Unknown]
